FAERS Safety Report 9502491 (Version 1)
Quarter: 2013Q3

REPORT INFORMATION
  Report Type: Spontaneous
  Country: US (occurrence: None)
  Receive Date: 20130904
  Receipt Date: 20130904
  Transmission Date: 20140515
  Serious: Yes (Hospitalization)
  Sender: FDA-Public Use
  Company Number: 2013CT000070

PATIENT
  Age: 56 Year
  Sex: Female
  Weight: 56.7 kg

DRUGS (12)
  1. KORLYM [Suspect]
     Indication: CUSHING^S SYNDROME
     Route: 048
     Dates: start: 20130814
  2. LABETALOL [Concomitant]
  3. SPIRONOLACTONE [Concomitant]
  4. LASIX [Concomitant]
  5. LEVOTHYROXINE [Concomitant]
  6. MITOTANE [Concomitant]
  7. CISPLATIN [Concomitant]
  8. DOXORUBICIN [Concomitant]
  9. POTASSIUM [Concomitant]
  10. CALCIUM [Concomitant]
  11. MULTIVITAMINS [Concomitant]
  12. LOVENOX [Concomitant]

REACTIONS (1)
  - Small intestinal ulcer haemorrhage [None]
